FAERS Safety Report 9853360 (Version 1)
Quarter: 2014Q1

REPORT INFORMATION
  Report Type: Spontaneous
  Country: US (occurrence: US)
  Receive Date: 20140129
  Receipt Date: 20140129
  Transmission Date: 20141002
  Serious: Yes (Other)
  Sender: FDA-Public Use
  Company Number: CHPA2014US001118

PATIENT
  Sex: Female

DRUGS (3)
  1. BUCKLEY^S UNKNOWN [Suspect]
     Indication: NASAL CONGESTION
     Dosage: UNK
  2. BUCKLEY^S UNKNOWN [Suspect]
     Indication: COUGH
  3. BUCKLEY^S UNKNOWN [Suspect]
     Indication: NASOPHARYNGITIS

REACTIONS (2)
  - Disease recurrence [Not Recovered/Not Resolved]
  - Malaise [Not Recovered/Not Resolved]
